FAERS Safety Report 23281841 (Version 2)
Quarter: 2023Q4

REPORT INFORMATION
  Report Type: Report from Study
  Country: CA (occurrence: CA)
  Receive Date: 20231211
  Receipt Date: 20231225
  Transmission Date: 20240109
  Serious: Yes (Other)
  Sender: FDA-Public Use
  Company Number: CA-BAYER-2023A175766

PATIENT
  Sex: Male

DRUGS (1)
  1. EYLEA [Suspect]
     Active Substance: AFLIBERCEPT
     Indication: Diabetic retinal oedema
     Dosage: MG/0.05ML, OU, SOLUTION FOR INJECTION, 40MG/ML
     Dates: start: 20231202

REACTIONS (2)
  - Blindness [Unknown]
  - Inappropriate schedule of product administration [Unknown]
